FAERS Safety Report 9971653 (Version 1)
Quarter: 2014Q1

REPORT INFORMATION
  Report Type: Spontaneous
  Country: US (occurrence: None)
  Receive Date: 20140305
  Receipt Date: 20140305
  Transmission Date: 20141002
  Serious: Yes (Disabling, Other)
  Sender: FDA-Public Use
  Company Number: None

PATIENT
  Age: 64 Year
  Sex: Female
  Weight: 99.79 kg

DRUGS (2)
  1. PRAVASTATIN [Suspect]
     Indication: BLOOD CHOLESTEROL INCREASED
     Dosage: 1 PILL ONCE DAILY TAKEN BY MOUTH
     Route: 048
     Dates: start: 20140101, end: 20140210
  2. PRAVASTATIN [Suspect]
     Indication: BLOOD CHOLESTEROL INCREASED
     Dates: start: 20020101, end: 20140101

REACTIONS (9)
  - Activities of daily living impaired [None]
  - Muscle disorder [None]
  - Back pain [None]
  - Muscular weakness [None]
  - Insomnia [None]
  - Discomfort [None]
  - Dysstasia [None]
  - Pain [None]
  - Feeling abnormal [None]
